FAERS Safety Report 5467395-1 (Version None)
Quarter: 2007Q3

REPORT INFORMATION
  Report Type: 
  Country: None (occurrence: None)
  Receive Date: 20070925
  Receipt Date: 20070913
  Transmission Date: 20080115
  Serious: Yes (Other)
  Sender: FDA-Public Use
  Company Number: GB-PFIZER INC-2007076999

PATIENT
  Age: 46 Year
  Sex: Female
  Weight: 53 kg

DRUGS (5)
  1. VARENICLINE TABLETS [Suspect]
     Route: 048
     Dates: start: 20070726, end: 20070831
  2. AMITRIPTYLINE HCL [Concomitant]
     Route: 048
  3. OMEPRAZOLE [Concomitant]
     Route: 048
  4. SALBUTAMOL [Concomitant]
     Route: 055
  5. SERETIDE [Concomitant]
     Route: 055

REACTIONS (1)
  - ASTHMA [None]
